FAERS Safety Report 22814013 (Version 5)
Quarter: 2025Q3

REPORT INFORMATION
  Report Type: Report from Study
  Country: BR (occurrence: BR)
  Receive Date: 20230811
  Receipt Date: 20250723
  Transmission Date: 20251020
  Serious: Yes (Other)
  Sender: TAKEDA
  Company Number: BR-TAKEDA-2023TUS022700

PATIENT
  Sex: Female

DRUGS (1)
  1. VEDOLIZUMAB [Suspect]
     Active Substance: VEDOLIZUMAB
     Indication: Colitis ulcerative

REACTIONS (13)
  - Haematochezia [Unknown]
  - Alopecia [Unknown]
  - Inappropriate schedule of product administration [Not Recovered/Not Resolved]
  - Product availability issue [Unknown]
  - Diarrhoea [Unknown]
  - Dehydration [Unknown]
  - Vitamin D decreased [Unknown]
  - Liver function test abnormal [Unknown]
  - Anaemia [Unknown]
  - Rheumatic disorder [Unknown]
  - Malaise [Unknown]
  - Asthenia [Unknown]
  - Influenza [Recovered/Resolved]
